FAERS Safety Report 10615038 (Version 3)
Quarter: 2014Q4

REPORT INFORMATION
  Report Type: Report from Study
  Country: US (occurrence: US)
  Receive Date: 20141201
  Receipt Date: 20141215
  Transmission Date: 20150529
  Serious: Yes (Death, Hospitalization)
  Sender: FDA-Public Use
  Company Number: PHEH2014US016264

PATIENT
  Sex: Male
  Weight: 74.84 kg

DRUGS (1)
  1. EXJADE [Suspect]
     Active Substance: DEFERASIROX
     Indication: LYMPHOPROLIFERATIVE DISORDER
     Dosage: 750 MG, QD
     Route: 048
     Dates: end: 20141001

REACTIONS (2)
  - Lymphoproliferative disorder [Not Recovered/Not Resolved]
  - Lymphoma [Fatal]
